FAERS Safety Report 7416603-6 (Version None)
Quarter: 2011Q2

REPORT INFORMATION
  Report Type: 
  Country: None (occurrence: None)
  Receive Date: 20110415
  Receipt Date: 20110408
  Transmission Date: 20111010
  Serious: Yes (Hospitalization, Other)
  Sender: FDA-Public Use
  Company Number: US-BIOGENIDEC-2010BI043715

PATIENT
  Age: 45 Year
  Sex: Female

DRUGS (3)
  1. AVONEX [Suspect]
     Route: 030
     Dates: start: 20010207, end: 20051101
  2. AVONEX [Suspect]
     Indication: MULTIPLE SCLEROSIS
     Route: 030
     Dates: start: 20091118
  3. CHEMOTHERAPY [Concomitant]

REACTIONS (9)
  - BLINDNESS UNILATERAL [None]
  - THYROID CANCER [None]
  - POOR VENOUS ACCESS [None]
  - INCONTINENCE [None]
  - VIITH NERVE PARALYSIS [None]
  - MULTIPLE SCLEROSIS RELAPSE [None]
  - MUSCULAR WEAKNESS [None]
  - HYPOAESTHESIA [None]
  - DYSURIA [None]
